FAERS Safety Report 22884207 (Version 4)
Quarter: 2023Q4

REPORT INFORMATION
  Report Type: Spontaneous
  Country: US (occurrence: US)
  Receive Date: 20230830
  Receipt Date: 20231017
  Transmission Date: 20240110
  Serious: Yes (Hospitalization)
  Sender: FDA-Public Use
  Company Number: US-VERTEX PHARMACEUTICALS-2023-012352

PATIENT
  Age: 71 Year
  Sex: Male

DRUGS (5)
  1. TRIKAFTA [Suspect]
     Active Substance: ELEXACAFTOR\IVACAFTOR\TEZACAFTOR
     Indication: Cystic fibrosis
     Dosage: STARTED ON REDUCED; 1 ORANGE TABLET
     Route: 048
     Dates: start: 20230801, end: 20230807
  2. TRIKAFTA [Suspect]
     Active Substance: ELEXACAFTOR\IVACAFTOR\TEZACAFTOR
     Dosage: INCREASED TO 1 ORANGE AND 1 BLUE
     Route: 048
     Dates: start: 20230808, end: 20230814
  3. TRIKAFTA [Suspect]
     Active Substance: ELEXACAFTOR\IVACAFTOR\TEZACAFTOR
     Dosage: FULL DOSE; SWITCHED; 1 BLUE IN AM; 2 ORANGE IN PM
     Route: 048
     Dates: start: 202308, end: 20230818
  4. TRIKAFTA [Suspect]
     Active Substance: ELEXACAFTOR\IVACAFTOR\TEZACAFTOR
     Dosage: RESTARTED ON REDUCED; 1 ORANGE TAB
     Route: 048
     Dates: start: 20230913, end: 20230915
  5. BACTRIM [Suspect]
     Active Substance: SULFAMETHOXAZOLE\TRIMETHOPRIM
     Indication: Product used for unknown indication
     Dosage: UNK
     Route: 065

REACTIONS (17)
  - Genital rash [Unknown]
  - Rash pruritic [Unknown]
  - Rash [Unknown]
  - Blood pressure decreased [Unknown]
  - Hyponatraemia [Recovering/Resolving]
  - Testicular swelling [Unknown]
  - Balance disorder [Not Recovered/Not Resolved]
  - Brain fog [Unknown]
  - Nausea [Not Recovered/Not Resolved]
  - Fall [Recovered/Resolved]
  - Hyperhidrosis [Unknown]
  - Papule [Unknown]
  - Insomnia [Recovering/Resolving]
  - Drug hypersensitivity [Unknown]
  - Erythema [Recovering/Resolving]
  - External ear pain [Unknown]
  - Dizziness [Not Recovered/Not Resolved]

NARRATIVE: CASE EVENT DATE: 20230801
